FAERS Safety Report 10006492 (Version 2)
Quarter: 2014Q2

REPORT INFORMATION
  Report Type: Spontaneous
  Country: GB (occurrence: GB)
  Receive Date: 20140313
  Receipt Date: 20140516
  Transmission Date: 20141212
  Serious: Yes (Other)
  Sender: FDA-Public Use
  Company Number: GB-ASTRAZENECA-2014SE15176

PATIENT
  Age: 65 Year
  Sex: Male
  Weight: 112 kg

DRUGS (9)
  1. CRESTOR [Suspect]
     Indication: BLOOD CHOLESTEROL INCREASED
     Route: 048
  2. ATORVASTATIN [Suspect]
     Indication: BLOOD CHOLESTEROL INCREASED
     Route: 048
     Dates: start: 1999, end: 2010
  3. ASPIRIN [Concomitant]
  4. BENDROFLUMETHIAZIDE [Concomitant]
  5. DOXAZOSIN [Concomitant]
  6. LISINOPRIL [Concomitant]
  7. OMACOR [Concomitant]
  8. VITAMIN B SUBSTANCES [Concomitant]
  9. VITAMIN C [Concomitant]

REACTIONS (1)
  - Small fibre neuropathy [Not Recovered/Not Resolved]
